FAERS Safety Report 5179248-7 (Version None)
Quarter: 2006Q4

REPORT INFORMATION
  Report Type: 
  Country: None (occurrence: None)
  Receive Date: 20061219
  Receipt Date: 20061213
  Transmission Date: 20070319
  Serious: Yes (Disabling)
  Sender: FDA-Public Use
  Company Number: AT-AVENTIS-200622658GDDC

PATIENT
  Age: 67 Year
  Sex: Male
  Weight: 66 kg

DRUGS (11)
  1. LANTUS [Suspect]
     Route: 058
     Dates: start: 20060730, end: 20060802
  2. INSULIN LISPRO [Suspect]
  3. ACULAR [Concomitant]
     Indication: GLAUCOMA
     Route: 031
  4. BETNESOL N [Concomitant]
     Indication: GLAUCOMA
     Route: 031
  5. CONCOR                             /00802602/ [Concomitant]
     Route: 048
  6. LOSARTAN POTASSIUM [Concomitant]
     Route: 048
  7. COSOPT                             /01419801/ [Concomitant]
     Indication: GLAUCOMA
     Route: 031
  8. CRESTOR [Concomitant]
     Route: 048
  9. DOLOBENE                           /00018601/ [Concomitant]
  10. LUMIGAN [Concomitant]
     Route: 031
  11. MARCUMAR [Concomitant]
     Route: 048

REACTIONS (2)
  - DEPRESSED LEVEL OF CONSCIOUSNESS [None]
  - KETOACIDOSIS [None]
